FAERS Safety Report 8073857-3 (Version None)
Quarter: 2011Q4

REPORT INFORMATION
  Report Type: 
  Country: None (occurrence: None)
  Receive Date: 20111221
  Receipt Date: 20110304
  Transmission Date: 20120403
  Serious: Yes (Other)
  Sender: FDA-Public Use
  Company Number: PHHY2011US17973

PATIENT
  Age: 36 Year
  Sex: Female
  Weight: 62.5 kg

DRUGS (1)
  1. EXJADE [Suspect]
     Indication: SICKLE CELL ANAEMIA
     Dosage: ORAL
     Route: 048

REACTIONS (2)
  - SICKLE CELL ANAEMIA WITH CRISIS [None]
  - PAIN [None]
